FAERS Safety Report 16143414 (Version 1)
Quarter: 2019Q2

REPORT INFORMATION
  Report Type: Not Available
  Country: US (occurrence: US)
  Receive Date: 20190401
  Receipt Date: 20190401
  Transmission Date: 20190711
  Serious: No
  Sender: FDA-Public Use
  Company Number: US-NEUROCRINE BIOSCIENCES INC.-2019NBI00733

PATIENT
  Sex: Female

DRUGS (8)
  1. SIMVASTATIN. [Concomitant]
     Active Substance: SIMVASTATIN
  2. BALSALAZIDE [Concomitant]
     Active Substance: BALSALAZIDE
  3. OMEPRAZOLE. [Concomitant]
     Active Substance: OMEPRAZOLE
  4. QUETIAPINE. [Concomitant]
     Active Substance: QUETIAPINE
  5. BUPROPION. [Concomitant]
     Active Substance: BUPROPION
  6. INGREZZA [Suspect]
     Active Substance: VALBENAZINE
     Indication: TARDIVE DYSKINESIA
     Route: 048
  7. DULOXETINE. [Concomitant]
     Active Substance: DULOXETINE
  8. LITHIUM. [Concomitant]
     Active Substance: LITHIUM

REACTIONS (1)
  - Tardive dyskinesia [Unknown]
